FAERS Safety Report 18424069 (Version 2)
Quarter: 2020Q4

REPORT INFORMATION
  Report Type: Report from Study
  Country: None (occurrence: US)
  Receive Date: 20201025
  Receipt Date: 20201028
  Transmission Date: 20210114
  Serious: Yes (Death, Hospitalization)
  Sender: FDA-Public Use
  Company Number: US-ABBVIE-20K-163-3623529-00

PATIENT
  Sex: Male
  Weight: 63.56 kg

DRUGS (8)
  1. METFORMIN [Concomitant]
     Active Substance: METFORMIN HYDROCHLORIDE
     Indication: TYPE 2 DIABETES MELLITUS
  2. POTASSIUM [Concomitant]
     Active Substance: POTASSIUM
     Indication: SUPPLEMENTATION THERAPY
  3. DUOPA [Suspect]
     Active Substance: CARBIDOPA\LEVODOPA
  4. CARBIDOPA/LEVODOPA [Concomitant]
     Active Substance: CARBIDOPA\LEVODOPA
     Indication: PARKINSON^S DISEASE
  5. DUOPA [Suspect]
     Active Substance: CARBIDOPA\LEVODOPA
     Indication: PARKINSON^S DISEASE
     Dosage: 4.63 MG/ML 20 MG/ML
     Route: 050
     Dates: start: 2016, end: 2020
  6. VITAMIN B12 [Concomitant]
     Active Substance: CYANOCOBALAMIN
     Indication: SUPPLEMENTATION THERAPY
  7. FLUDROCORTISONE [Concomitant]
     Active Substance: FLUDROCORTISONE
     Indication: PARKINSON^S DISEASE
  8. AMANDINE [Concomitant]
     Indication: PARKINSON^S DISEASE

REACTIONS (3)
  - Device dislocation [Recovered/Resolved]
  - Exposure to SARS-CoV-2 [Unknown]
  - COVID-19 [Fatal]

NARRATIVE: CASE EVENT DATE: 2020
